FAERS Safety Report 5546720-7 (Version None)
Quarter: 2007Q4

REPORT INFORMATION
  Report Type: 
  Country: None (occurrence: None)
  Receive Date: 20071211
  Receipt Date: 20071204
  Transmission Date: 20080405
  Serious: Yes (Other)
  Sender: FDA-Public Use
  Company Number: US-JNJFOC-20071202145

PATIENT
  Sex: Female

DRUGS (2)
  1. RISPERDAL [Suspect]
     Indication: DEMENTIA ALZHEIMER'S TYPE
  2. ANTIDEPRESSANT [Concomitant]

REACTIONS (4)
  - ABASIA [None]
  - DEMENTIA ALZHEIMER'S TYPE [None]
  - EXPRESSIVE LANGUAGE DISORDER [None]
  - FEEDING DISORDER [None]
